FAERS Safety Report 20697522 (Version 1)
Quarter: 2022Q2

REPORT INFORMATION
  Report Type: Spontaneous
  Country: US (occurrence: US)
  Receive Date: 20220411
  Receipt Date: 20220411
  Transmission Date: 20220720
  Serious: Yes (Other)
  Sender: FDA-Public Use
  Company Number: US-LUNDBECK-DKLU3046764

PATIENT

DRUGS (2)
  1. ONFI [Suspect]
     Active Substance: CLOBAZAM
     Indication: Seizure
     Route: 065
  2. ONFI [Suspect]
     Active Substance: CLOBAZAM
     Dosage: ONCE
     Route: 065

REACTIONS (1)
  - Intentional overdose [Recovered/Resolved]
